FAERS Safety Report 5595198-6 (Version None)
Quarter: 2008Q1

REPORT INFORMATION
  Report Type: 
  Country: None (occurrence: None)
  Receive Date: 20080117
  Receipt Date: 20080107
  Transmission Date: 20080703
  Serious: Yes (Hospitalization)
  Sender: FDA-Public Use
  Company Number: SE-PFIZER INC-2008001661

PATIENT
  Sex: Female

DRUGS (5)
  1. LYRICA [Suspect]
     Indication: DEPRESSION
     Route: 048
     Dates: start: 20071015, end: 20071015
  2. LITHIUM CARBONATE [Suspect]
     Indication: DEPRESSION
     Route: 048
     Dates: start: 20071015, end: 20071015
  3. CLOMIPRAMINE HYDROCHLORIDE [Suspect]
     Indication: DEPRESSION
     Route: 048
     Dates: start: 20071015, end: 20071015
  4. OXYCODAN [Suspect]
     Indication: DEPRESSION
     Route: 048
     Dates: start: 20071015, end: 20071015
  5. LAMOTRIGINE [Suspect]
     Indication: DEPRESSION
     Route: 048
     Dates: start: 20071015, end: 20071015

REACTIONS (1)
  - SUICIDE ATTEMPT [None]
